FAERS Safety Report 13255609 (Version 1)
Quarter: 2017Q1

REPORT INFORMATION
  Report Type: Spontaneous
  Country: US (occurrence: US)
  Receive Date: 20170218
  Receipt Date: 20170218
  Transmission Date: 20170428
  Serious: Yes (Disabling, Other)
  Sender: FDA-Public Use
  Company Number: None

PATIENT
  Age: 68 Year
  Sex: Female
  Weight: 84.6 kg

DRUGS (18)
  1. LASIX [Concomitant]
     Active Substance: FUROSEMIDE
  2. TRAMADOL. [Concomitant]
     Active Substance: TRAMADOL
  3. METHOCARBAM [Concomitant]
  4. MECLIZINE [Concomitant]
     Active Substance: MECLIZINE HYDROCHLORIDE
  5. SEROTONIN [Concomitant]
     Active Substance: SEROTONIN
  6. PROPANOLOL [Concomitant]
     Active Substance: PROPRANOLOL HYDROCHLORIDE
  7. PROBIOTIC [Concomitant]
     Active Substance: PROBIOTICS NOS
  8. LATUDA [Suspect]
     Active Substance: LURASIDONE HYDROCHLORIDE
     Indication: BIPOLAR I DISORDER
     Route: 048
     Dates: start: 20170117, end: 20170120
  9. OCUVITE [Concomitant]
     Active Substance: VITAMINS
  10. DIAZEPAM. [Concomitant]
     Active Substance: DIAZEPAM
  11. 1-A-DAY VITAMIN [Concomitant]
  12. LEVOTHYROXIN [Concomitant]
     Active Substance: LEVOTHYROXINE
  13. GUAIFAISIN [Concomitant]
  14. ZOLPIDEM [Concomitant]
     Active Substance: ZOLPIDEM\ZOLPIDEM TARTRATE
  15. FLONASE [Concomitant]
     Active Substance: FLUTICASONE PROPIONATE
  16. LATUDA [Suspect]
     Active Substance: LURASIDONE HYDROCHLORIDE
     Indication: BIPOLAR DISORDER
     Route: 048
     Dates: start: 20170117, end: 20170120
  17. KLOR KON [Concomitant]
  18. BENADRYL [Concomitant]
     Active Substance: DIPHENHYDRAMINE HYDROCHLORIDE

REACTIONS (12)
  - Malaise [None]
  - Acute kidney injury [None]
  - Hypersensitivity [None]
  - Agitation [None]
  - Hepatic enzyme increased [None]
  - Brain injury [None]
  - Thinking abnormal [None]
  - Peripheral swelling [None]
  - Spider vein [None]
  - Tardive dyskinesia [None]
  - Blood urine present [None]
  - Dysgraphia [None]

NARRATIVE: CASE EVENT DATE: 20170116
